FAERS Safety Report 15765219 (Version 1)
Quarter: 2018Q4

REPORT INFORMATION
  Report Type: Spontaneous
  Country: DE (occurrence: DE)
  Receive Date: 20181227
  Receipt Date: 20181227
  Transmission Date: 20190205
  Serious: Yes (Hospitalization, Other)
  Sender: FDA-Public Use
  Company Number: DE-SAKK-2018SA344697AA

PATIENT
  Age: 43 Year
  Sex: Male

DRUGS (1)
  1. FABRAZYME [Suspect]
     Active Substance: AGALSIDASE BETA
     Indication: FABRY^S DISEASE
     Route: 041

REACTIONS (19)
  - Normocytic anaemia [Unknown]
  - Nausea [Unknown]
  - Abdominal pain [Unknown]
  - Hypersensitivity [Recovered/Resolved]
  - Dyspnoea [Recovered/Resolved]
  - Cardiomyopathy [Unknown]
  - Chronic kidney disease [Unknown]
  - Renal cyst [Unknown]
  - Feeling cold [Recovered/Resolved]
  - Normochromic anaemia [Unknown]
  - Paraesthesia [Unknown]
  - Feeling hot [Unknown]
  - Cornea verticillata [Unknown]
  - Neuralgia [Unknown]
  - Bronchitis [Unknown]
  - Dyspnoea [Unknown]
  - Pallor [Unknown]
  - Chills [Recovered/Resolved]
  - Vomiting [Unknown]
